FAERS Safety Report 5619843-1 (Version None)
Quarter: 2008Q1

REPORT INFORMATION
  Report Type: 
  Country: None (occurrence: None)
  Receive Date: 20080208
  Receipt Date: 20080201
  Transmission Date: 20080703
  Serious: Yes (Death, Hospitalization)
  Sender: FDA-Public Use
  Company Number: US-BRACCO-BDI-010400

PATIENT
  Sex: Female

DRUGS (17)
  1. ISOVUE-128 [Suspect]
     Indication: ANGIOGRAM
     Route: 042
     Dates: start: 20071004, end: 20071004
  2. ISOVUE-128 [Suspect]
     Indication: ANGIOPLASTY
     Route: 042
     Dates: start: 20071004, end: 20071004
  3. ISOVUE-128 [Suspect]
     Indication: ANASTOMOTIC STENOSIS
     Route: 042
     Dates: start: 20071004, end: 20071004
  4. ALBUTEROL [Concomitant]
     Route: 065
     Dates: start: 20071004, end: 20071004
  5. SOLU-MEDROL [Concomitant]
     Route: 042
     Dates: start: 20071004
  6. EPINEPHRINE [Concomitant]
     Dosage: 1:1000 1 MG IV
     Route: 042
     Dates: start: 20071004
  7. ATROVENT [Concomitant]
     Route: 065
     Dates: start: 20071004
  8. BENADRYL [Concomitant]
     Route: 042
     Dates: start: 20071004
  9. BENADRYL [Concomitant]
     Route: 065
     Dates: start: 20071004, end: 20071004
  10. SOLU-MEDROL [Concomitant]
     Route: 065
     Dates: start: 20071004, end: 20071004
  11. ZESTRIL [Concomitant]
     Dosage: 20 MG 1 TB BID
     Route: 065
  12. COZAAR [Concomitant]
     Route: 048
  13. TOPROL-XL [Concomitant]
     Route: 048
  14. MINOXIDIL [Concomitant]
     Dosage: 10 MG 1 TB PO BID
     Route: 048
  15. NEPHRO-VITE RX [Concomitant]
     Dosage: 1 TB PO QD
     Route: 048
  16. PHOSLO [Concomitant]
     Dosage: 667 MG 5 TBS PO WITH MEALS
     Route: 048
  17. SENSIPAR [Concomitant]
     Dosage: 90 MG 1 TBD PO QPM (DINNER)
     Route: 048

REACTIONS (1)
  - ANAPHYLACTIC SHOCK [None]
